FAERS Safety Report 10881541 (Version 2)
Quarter: 2015Q1

REPORT INFORMATION
  Report Type: Spontaneous
  Country: US (occurrence: US)
  Receive Date: 20150303
  Receipt Date: 20150324
  Transmission Date: 20150721
  Serious: Yes (Other)
  Sender: FDA-Public Use
  Company Number: US-ASTRAZENECA-1998AU06376

PATIENT
  Age: 63 Year
  Sex: Female
  Weight: 62.6 kg

DRUGS (20)
  1. PREVACID [Concomitant]
     Active Substance: LANSOPRAZOLE
  2. ATARAX [Concomitant]
     Active Substance: HYDROXYZINE\HYDROXYZINE HYDROCHLORIDE
  3. ZOFRAN [Concomitant]
     Active Substance: ONDANSETRON HYDROCHLORIDE
  4. PULMICORT TURBUHALER [Suspect]
     Active Substance: BUDESONIDE
     Indication: ASTHMA
     Route: 055
     Dates: start: 19981001
  5. NEXIUM [Suspect]
     Active Substance: ESOMEPRAZOLE MAGNESIUM
     Indication: BARRETT^S OESOPHAGUS
     Route: 048
     Dates: start: 2011
  6. PROVENTIL [Concomitant]
     Active Substance: ALBUTEROL
     Dosage: 2 PUFFS DAILY AS REQUIRED
     Route: 055
  7. CLONIDINE. [Concomitant]
     Active Substance: CLONIDINE
  8. PROMETHAZINE [Concomitant]
     Active Substance: PROMETHAZINE\PROMETHAZINE HYDROCHLORIDE
  9. LAC-HYDRIN [Concomitant]
     Active Substance: AMMONIUM LACTATE
     Dosage: BID
  10. PROPULSID [Concomitant]
     Active Substance: CISAPRIDE
  11. GLUCOPHAGE [Concomitant]
     Active Substance: METFORMIN HYDROCHLORIDE
  12. COUMADIN [Concomitant]
     Active Substance: WARFARIN SODIUM
     Indication: ATRIAL FIBRILLATION
  13. NEXIUM [Suspect]
     Active Substance: ESOMEPRAZOLE MAGNESIUM
     Indication: GASTROOESOPHAGEAL REFLUX DISEASE
     Route: 048
     Dates: start: 2011
  14. SEREVENT [Concomitant]
     Active Substance: SALMETEROL XINAFOATE
     Dosage: 2 PUFFS BID AS REQUIRED
     Route: 055
  15. CLARITIN [Concomitant]
     Active Substance: LORATADINE
  16. TIAZAC [Concomitant]
     Active Substance: DILTIAZEM HYDROCHLORIDE
     Indication: HYPERTENSION
  17. VANCENASE [Concomitant]
     Active Substance: BECLOMETHASONE DIPROPIONATE
     Dosage: 2 SPRAY EVERY MORNING
  18. GEMFIBROZIL. [Concomitant]
     Active Substance: GEMFIBROZIL
  19. ZOLOFT [Concomitant]
     Active Substance: SERTRALINE HYDROCHLORIDE
  20. ACCOLATE [Concomitant]
     Active Substance: ZAFIRLUKAST

REACTIONS (6)
  - Dysphonia [Not Recovered/Not Resolved]
  - Drug dose omission [Recovered/Resolved]
  - Dry mouth [Not Recovered/Not Resolved]
  - Memory impairment [Unknown]
  - Cataract [Unknown]
  - Product use issue [Unknown]

NARRATIVE: CASE EVENT DATE: 19981001
